FAERS Safety Report 21433474 (Version 1)
Quarter: 2022Q4

REPORT INFORMATION
  Report Type: Spontaneous
  Country: US (occurrence: None)
  Receive Date: 20221010
  Receipt Date: 20221010
  Transmission Date: 20230113
  Serious: No
  Sender: FDA-Public Use
  Company Number: US-ROCHE-3042449

PATIENT
  Age: 75 Year
  Sex: Female
  Weight: 79.904 kg

DRUGS (1)
  1. ZELBORAF [Suspect]
     Active Substance: VEMURAFENIB
     Indication: Thyroid cancer
     Dosage: 4 TABLETS
     Route: 048
     Dates: start: 20220222

REACTIONS (1)
  - Sunburn [Unknown]

NARRATIVE: CASE EVENT DATE: 20220301
